FAERS Safety Report 13769703 (Version 1)
Quarter: 2017Q3

REPORT INFORMATION
  Report Type: Spontaneous
  Country: GB (occurrence: GB)
  Receive Date: 20170719
  Receipt Date: 20170719
  Transmission Date: 20171127
  Serious: Yes (Other)
  Sender: FDA-Public Use
  Company Number: GB-PFIZER INC-2949245

PATIENT
  Age: 65 Year
  Sex: Female

DRUGS (1)
  1. METHOTREXATE SODIUM. [Suspect]
     Active Substance: METHOTREXATE SODIUM
     Indication: PSORIASIS
     Dosage: 5 MG, HAD FOR THE LAST 4-5 YEARS; FREQ: 1 WEEK; INTERVAL: 1
     Route: 048

REACTIONS (4)
  - Cerebellar syndrome [Not Recovered/Not Resolved]
  - Balance disorder [Unknown]
  - Ataxia [Unknown]
  - Gait disturbance [Unknown]
